FAERS Safety Report 11897433 (Version 1)
Quarter: 2016Q1

REPORT INFORMATION
  Report Type: Spontaneous
  Country: AT (occurrence: AT)
  Receive Date: 20160108
  Receipt Date: 20160108
  Transmission Date: 20160526
  Serious: Yes (Other)
  Sender: FDA-Public Use
  Company Number: AT-HOSPIRA-3132288

PATIENT
  Age: 33 Year
  Sex: Male

DRUGS (3)
  1. DEXAMETHASONE. [Suspect]
     Active Substance: DEXAMETHASONE
     Indication: ANAPLASTIC LARGE-CELL LYMPHOMA
     Dates: start: 201302
  2. GEMCITABINE HYDROCHLORIDE. [Suspect]
     Active Substance: GEMCITABINE HYDROCHLORIDE
     Indication: ANAPLASTIC LARGE-CELL LYMPHOMA
     Dates: start: 201302
  3. CISPLATIN. [Suspect]
     Active Substance: CISPLATIN
     Indication: ANAPLASTIC LARGE-CELL LYMPHOMA
     Dates: start: 201302

REACTIONS (4)
  - Febrile neutropenia [Unknown]
  - Abdominal pain [Unknown]
  - Deep vein thrombosis [Unknown]
  - Diarrhoea [Unknown]
